FAERS Safety Report 6096704-8 (Version None)
Quarter: 2009Q1

REPORT INFORMATION
  Report Type: 
  Country: None (occurrence: None)
  Receive Date: 20090225
  Receipt Date: 20090225
  Transmission Date: 20090719
  Serious: Yes (Life-Threatening, Hospitalization, Other)
  Sender: FDA-Public Use
  Company Number: None

PATIENT
  Age: 75 Year
  Sex: Male
  Weight: 82.1 kg

DRUGS (3)
  1. LISINOPRIL [Suspect]
     Indication: HYPERTENSION
     Dosage: 5 MG EVERY DAY PO
     Route: 048
     Dates: start: 20060601, end: 20090224
  2. LISINOPRIL [Suspect]
     Indication: PROPHYLAXIS
     Dosage: 5 MG EVERY DAY PO
     Route: 048
     Dates: start: 20060601, end: 20090224
  3. LISINOPRIL [Suspect]
     Indication: RENAL DISORDER
     Dosage: 5 MG EVERY DAY PO
     Route: 048
     Dates: start: 20060601, end: 20090224

REACTIONS (3)
  - ANAPHYLACTIC REACTION [None]
  - ANGIOEDEMA [None]
  - OBSTRUCTIVE AIRWAYS DISORDER [None]
